FAERS Safety Report 7483757-5 (Version None)
Quarter: 2011Q2

REPORT INFORMATION
  Report Type: 
  Country: None (occurrence: None)
  Receive Date: 20110517
  Receipt Date: 20110506
  Transmission Date: 20111010
  Serious: Yes (Other)
  Sender: FDA-Public Use
  Company Number: PHHY2011JP39261

PATIENT
  Age: 3 Day
  Sex: Male

DRUGS (2)
  1. LOXONIN [Suspect]
     Dosage: MATERNAL DOSE: UNK
     Route: 063
  2. VOLTAREN [Suspect]
     Dosage: MATERNAL DOSE: UNK
     Route: 063

REACTIONS (3)
  - APNOEA [None]
  - HYPOTHERMIA [None]
  - DRUG EXPOSURE VIA BREAST MILK [None]
